FAERS Safety Report 10273298 (Version 1)
Quarter: 2014Q1

REPORT INFORMATION
  Report Type: Spontaneous
  Country: US (occurrence: None)
  Receive Date: 20140306
  Receipt Date: 20140306
  Transmission Date: 20141002
  Serious: Yes (Other)
  Sender: FDA-Public Use
  Company Number: 163-21880-13010875

PATIENT
  Age: 61 Year
  Sex: Female
  Weight: 78 kg

DRUGS (10)
  1. REVLIMID (LENALIDOMIDE) (5 MILLIGRAM, CAPSULES) [Suspect]
     Indication: PLASMA CELL MYELOMA
     Dosage: 5 MG, 21 IN 28 D, PO
     Route: 048
     Dates: start: 20080919
  2. AMITRIPTYLINE HCL (AMITRIPTYLINE HYDROCHLORIDE) [Concomitant]
  3. COUMADIN (WARFARIN SODIUM) (TABLETS) [Concomitant]
  4. CYCLOBENZAPRINE HCL (CYCLOBENZAPRINE HYDROCHLORIDE) [Concomitant]
  5. PROAIR HFA (SALBUTAMOL SULFATE) [Concomitant]
  6. SUDAFED (PSEUDOEPHEDRINE HYDROCHLORIDE) (TABLETS) [Concomitant]
  7. VITAMIN D (ERGOCALCIFEROL) [Concomitant]
  8. CHANTIX (VARENICLINE TARTRATE) [Concomitant]
  9. ALLERGY RELIEF D-12 (CETIRIZINE HYDROCHLORIDE) [Concomitant]
  10. ALBUTEROL (SALBUTAMOL) [Concomitant]

REACTIONS (3)
  - Thrombosis in device [None]
  - Muscle spasms [None]
  - Arthralgia [None]
